FAERS Safety Report 5527580-7 (Version None)
Quarter: 2007Q4

REPORT INFORMATION
  Report Type: 
  Country: None (occurrence: None)
  Receive Date: 20071128
  Receipt Date: 20071114
  Transmission Date: 20080405
  Serious: Yes (Other)
  Sender: FDA-Public Use
  Company Number: AU-RANBAXY-2007US-11554

PATIENT

DRUGS (1)
  1. VERAPAMIL [Suspect]
     Indication: HEART RATE IRREGULAR
     Dosage: 240 MG, QD
     Route: 048

REACTIONS (4)
  - ASTHENIA [None]
  - COUGH [None]
  - DEPRESSION [None]
  - FATIGUE [None]
